FAERS Safety Report 21859307 (Version 2)
Quarter: 2023Q1

REPORT INFORMATION
  Report Type: Report from Study
  Country: CA (occurrence: CA)
  Receive Date: 20230113
  Receipt Date: 20230226
  Transmission Date: 20230418
  Serious: Yes (Other)
  Sender: FDA-Public Use
  Company Number: CA-ABBVIE-4268244

PATIENT
  Sex: Female
  Weight: 65 kg

DRUGS (3)
  1. HUMIRA [Suspect]
     Active Substance: ADALIMUMAB
     Indication: Rheumatoid arthritis
     Route: 058
     Dates: start: 20130726
  2. MORPHINE [Concomitant]
     Active Substance: MORPHINE
     Indication: Pain
     Dosage: TIME INTERVAL: 0.33333333 DAYS
     Route: 048
  3. BROMAZEPAM AL [Concomitant]
     Indication: Anxiety
     Route: 048

REACTIONS (17)
  - Spinal fusion surgery [Not Recovered/Not Resolved]
  - Spinal stenosis [Unknown]
  - Scar [Unknown]
  - Lumbar spinal stenosis [Unknown]
  - Back pain [Not Recovered/Not Resolved]
  - Intervertebral disc degeneration [Unknown]
  - Lumbar radiculopathy [Unknown]
  - Vertebral osteophyte [Unknown]
  - Facet joint syndrome [Unknown]
  - Spinal flattening [Unknown]
  - Spinal retrolisthesis [Unknown]
  - Spinal meningeal cyst [Unknown]
  - Vertebral foraminal stenosis [Unknown]
  - Epidural lipomatosis [Unknown]
  - Intervertebral disc protrusion [Unknown]
  - Intervertebral disc space narrowing [Unknown]
  - Exostosis [Unknown]
